FAERS Safety Report 14715171 (Version 12)
Quarter: 2018Q3

REPORT INFORMATION
  Report Type: Report from Study
  Country: PL (occurrence: PL)
  Receive Date: 20180404
  Receipt Date: 20180914
  Transmission Date: 20181010
  Serious: Yes (Hospitalization)
  Sender: FDA-Public Use
  Company Number: PL-ROCHE-2099054

PATIENT
  Age: 66 Year
  Sex: Male
  Weight: 72 kg

DRUGS (12)
  1. ATROVENT [Concomitant]
     Active Substance: IPRATROPIUM BROMIDE
     Indication: DYSPNOEA
     Dosage: INHALED
     Route: 065
     Dates: start: 20170308
  2. CLEXANE [Concomitant]
     Active Substance: ENOXAPARIN SODIUM
     Route: 058
     Dates: start: 20170410
  3. METIZOL (POLAND) [Concomitant]
     Route: 048
     Dates: start: 20170704
  4. LACIDOFIL [Concomitant]
     Active Substance: LACTOBACILLUS ACIDOPHILUS\LACTOBACILLUS RHAMNOSUS
     Route: 048
     Dates: start: 20170714
  5. TIAMAZOL [Concomitant]
     Route: 065
     Dates: start: 20180322
  6. CARBOPLATIN. [Suspect]
     Active Substance: CARBOPLATIN
     Indication: SMALL CELL LUNG CANCER EXTENSIVE STAGE
     Dosage: INITIAL TARGET AUC OF 5 MG/ML/MIN WILL BE ADMINISTERED ON DAY 1 OF EACH 21?DAY CYCLE DURING THE INDU
     Route: 042
     Dates: start: 20170412
  7. ATEZOLIZUMAB. [Suspect]
     Active Substance: ATEZOLIZUMAB
     Indication: SMALL CELL LUNG CANCER EXTENSIVE STAGE
     Dosage: DATE OF MOST RECENT DOSE OF ATEZOLIZUMAB (1150 MG) PRIOR TO SAE ONSET: 22/MAR/2018, 11.45?DATE OF MO
     Route: 042
     Dates: start: 20170412
  8. AUGMENTIN [Concomitant]
     Active Substance: AMOXICILLIN\CLAVULANATE POTASSIUM
     Indication: INFLAMMATION
     Route: 048
     Dates: start: 20170714
  9. OXODIL [Concomitant]
     Active Substance: FORMOTEROL FUMARATE
     Indication: CHRONIC OBSTRUCTIVE PULMONARY DISEASE
     Dosage: INHALED
     Route: 065
     Dates: start: 20170324
  10. SORBIFER DURULES [Concomitant]
     Active Substance: FERROUS SULFATE
     Indication: ANAEMIA
     Route: 048
     Dates: start: 20170714
  11. ETOPOSIDE. [Suspect]
     Active Substance: ETOPOSIDE
     Indication: SMALL CELL LUNG CANCER EXTENSIVE STAGE
     Dosage: 100 MG/M^2 ON DAYS 1, 2, AND 3 OF EACH 21?DAY CYCLE DURING THE INDUCTION PHASE (CYCLES 1?4).?DATE OF
     Route: 042
     Dates: start: 20170412
  12. FUROSEMID [Concomitant]
     Active Substance: FUROSEMIDE
     Route: 048
     Dates: start: 20170310

REACTIONS (1)
  - Jaundice [Recovered/Resolved]

NARRATIVE: CASE EVENT DATE: 20180324
